FAERS Safety Report 6986427-2 (Version None)
Quarter: 2010Q3

REPORT INFORMATION
  Report Type: 
  Country: None (occurrence: None)
  Receive Date: 20100915
  Receipt Date: 20090626
  Transmission Date: 20110219
  Serious: No
  Sender: FDA-Public Use
  Company Number: US-WYE-H09940309

PATIENT
  Age: 65 Year
  Sex: Female

DRUGS (7)
  1. PRISTIQ [Suspect]
     Indication: FIBROMYALGIA
     Route: 048
     Dates: start: 20090401, end: 20090401
  2. PRISTIQ [Suspect]
     Route: 048
     Dates: start: 20090401, end: 20090623
  3. PRISTIQ [Suspect]
     Dosage: FORGOT TO TAKE A FEW DOSES
     Route: 048
     Dates: start: 20090401, end: 20090401
  4. FLEXERIL [Suspect]
     Dosage: 5 MG AS NEEDED
  5. EFFEXOR [Concomitant]
     Indication: FIBROMYALGIA
     Route: 048
     Dates: start: 20090401, end: 20090401
  6. PREMARIN [Concomitant]
  7. SYNTHROID [Concomitant]

REACTIONS (8)
  - ABNORMAL DREAMS [None]
  - ANXIETY [None]
  - DRUG WITHDRAWAL SYNDROME [None]
  - EAR INFECTION [None]
  - INSOMNIA [None]
  - MUSCLE SPASMS [None]
  - NIGHT SWEATS [None]
  - SOMNOLENCE [None]
